FAERS Safety Report 19929258 (Version 2)
Quarter: 2021Q4

REPORT INFORMATION
  Report Type: Spontaneous
  Country: FR (occurrence: LB)
  Receive Date: 20211007
  Receipt Date: 20211021
  Transmission Date: 20220303
  Serious: Yes (Life-Threatening)
  Sender: FDA-Public Use
  Company Number: FR-STADA-233806

PATIENT
  Age: 42 Year
  Sex: Male

DRUGS (10)
  1. OLANZAPINE [Suspect]
     Active Substance: OLANZAPINE
     Indication: Psychotic disorder
     Dosage: 10 MG, DAILY
     Route: 065
     Dates: start: 2019
  2. OLANZAPINE [Suspect]
     Active Substance: OLANZAPINE
     Dosage: 20 MG, DAILY
     Route: 065
     Dates: start: 2019
  3. HALOPERIDOL [Suspect]
     Active Substance: HALOPERIDOL
     Indication: Agitation
     Dosage: 5 MG, UNKNOWN
     Route: 030
     Dates: start: 2019
  4. CHLORPROMAZINE [Suspect]
     Active Substance: CHLORPROMAZINE
     Indication: Agitation
     Dosage: 25 MG, UNKNOWN
     Route: 030
     Dates: start: 2019
  5. CHLORPROMAZINE [Suspect]
     Active Substance: CHLORPROMAZINE
     Dosage: 100 MG, UNKNOWN
     Route: 048
     Dates: start: 2019
  6. CHLORPROMAZINE [Suspect]
     Active Substance: CHLORPROMAZINE
     Dosage: 12.5 MG, UNKNOWN
     Route: 030
     Dates: start: 2019
  7. DIAZEPAM [Concomitant]
     Active Substance: DIAZEPAM
     Indication: Product used for unknown indication
     Dosage: 40 MG, DAILY
     Route: 065
     Dates: start: 2019
  8. PROMETHAZINE [Concomitant]
     Active Substance: PROMETHAZINE HYDROCHLORIDE
     Indication: Agitation
     Dosage: 50 MG, UNKNOWN
     Route: 030
     Dates: start: 2019
  9. PROMETHAZINE [Concomitant]
     Active Substance: PROMETHAZINE HYDROCHLORIDE
     Dosage: 100 MG, UNKNOWN
     Route: 030
     Dates: start: 2019
  10. BISOPROLOL [Concomitant]
     Active Substance: BISOPROLOL
     Indication: Sinus tachycardia
     Dosage: 5 MG, DAILY
     Route: 065
     Dates: start: 2019

REACTIONS (1)
  - Neuroleptic malignant syndrome [Recovering/Resolving]

NARRATIVE: CASE EVENT DATE: 20190101
